FAERS Safety Report 14436682 (Version 1)
Quarter: 2018Q1

REPORT INFORMATION
  Report Type: Spontaneous
  Country: GB (occurrence: GB)
  Receive Date: 20180125
  Receipt Date: 20180125
  Transmission Date: 20180509
  Serious: Yes (Other)
  Sender: FDA-Public Use
  Company Number: GB-TORRENT-00015991

PATIENT
  Age: 49 Year
  Sex: Female

DRUGS (6)
  1. DILTIAZEM. [Suspect]
     Active Substance: DILTIAZEM
     Indication: SKIN ULCER
  2. RAMIPRIL. [Suspect]
     Active Substance: RAMIPRIL
     Indication: SKIN ULCER
  3. CANDESARTAN. [Suspect]
     Active Substance: CANDESARTAN
     Indication: SKIN ULCER
  4. MINOCYCLINE [Suspect]
     Active Substance: MINOCYCLINE\MINOCYCLINE HYDROCHLORIDE
     Indication: SKIN ULCER
  5. BOSENTAN. [Suspect]
     Active Substance: BOSENTAN
     Indication: SKIN ULCER
  6. SILDENAFIL. [Suspect]
     Active Substance: SILDENAFIL
     Indication: SKIN ULCER

REACTIONS (3)
  - Off label use [Unknown]
  - Drug ineffective [Unknown]
  - Skin hyperpigmentation [Unknown]
